FAERS Safety Report 7334522-0 (Version None)
Quarter: 2011Q1

REPORT INFORMATION
  Report Type: 
  Country: None (occurrence: None)
  Receive Date: 20110307
  Receipt Date: 20110222
  Transmission Date: 20110831
  Serious: Yes (Death, Other)
  Sender: FDA-Public Use
  Company Number: CH-ELI_LILLY_AND_COMPANY-CH201102006215

PATIENT

DRUGS (5)
  1. ABILIFY [Concomitant]
     Indication: SCHIZOPHRENIA
     Dosage: 15 MG, DAILY (1/D)
     Dates: start: 20080101, end: 20100101
  2. CIPRALEX [Concomitant]
     Indication: SCHIZOPHRENIA
     Dosage: 10 MG, 2/D
     Dates: start: 20080101
  3. TEMESTA [Concomitant]
     Dates: end: 20100201
  4. STILNOX [Concomitant]
     Indication: INSOMNIA
     Dosage: 12.5 MG, DAILY (1/D)
     Dates: start: 20080101
  5. ZYPREXA [Suspect]
     Indication: SCHIZOPHRENIA
     Dosage: 7.5 MG, DAILY (1/D)
     Route: 064

REACTIONS (4)
  - CHORIOAMNIONITIS [None]
  - DEATH NEONATAL [None]
  - DRUG EXPOSURE DURING PREGNANCY [None]
  - PREMATURE BABY [None]
